FAERS Safety Report 23847415 (Version 1)
Quarter: 2024Q2

REPORT INFORMATION
  Report Type: Spontaneous
  Country: KW (occurrence: KW)
  Receive Date: 20240513
  Receipt Date: 20240513
  Transmission Date: 20240716
  Serious: No
  Sender: FDA-Public Use
  Company Number: KW-ALKEM LABORATORIES LIMITED-KW-ALKEM-2023-14196

PATIENT
  Age: 18 Year
  Sex: Female

DRUGS (7)
  1. AZATHIOPRINE [Suspect]
     Active Substance: AZATHIOPRINE
     Indication: Colitis ulcerative
     Dosage: 2.5 MILLIGRAM/KILOGRAM
     Route: 065
  2. ADALIMUMAB [Suspect]
     Active Substance: ADALIMUMAB\ISOPROPYL ALCOHOL
     Indication: Colitis ulcerative
     Dosage: 40 MILLIGRAM, ONCE IN 2 WEEKS
     Route: 058
  3. ADALIMUMAB [Suspect]
     Active Substance: ADALIMUMAB\ISOPROPYL ALCOHOL
     Dosage: 80 MILLIGRAM, ONCE WEEKLY
     Route: 058
  4. TOFACITINIB [Suspect]
     Active Substance: TOFACITINIB
     Indication: Colitis ulcerative
     Dosage: 5 MILLIGRAM, BID (TWICE DAILY)
     Route: 048
  5. TOFACITINIB [Suspect]
     Active Substance: TOFACITINIB
     Dosage: 10 MILLIGRAM, TID (THREE TIMES DAILY)
     Route: 048
  6. INFLIXIMAB [Suspect]
     Active Substance: INFLIXIMAB
     Indication: Colitis ulcerative
     Dosage: 10 MILLIGRAM/KILOGRAM (EVERY 8 WEEKS)
     Route: 065
  7. INFLIXIMAB [Suspect]
     Active Substance: INFLIXIMAB
     Indication: Immunosuppressant drug therapy

REACTIONS (1)
  - Treatment failure [Unknown]
